FAERS Safety Report 9308640 (Version 2)
Quarter: 2013Q3

REPORT INFORMATION
  Report Type: Other
  Country: US (occurrence: US)
  Receive Date: 20130524
  Receipt Date: 20130930
  Transmission Date: 20140515
  Serious: Yes (Death, Disabling)
  Sender: FDA-Public Use
  Company Number: US-BRISTOL-MYERS SQUIBB COMPANY-18898320

PATIENT
  Age: 32 Year
  Sex: Female
  Weight: 63 kg

DRUGS (7)
  1. IXABEPILONE [Suspect]
     Indication: BREAST CANCER METASTATIC
     Dosage: IXABEPILONE 45MG
     Route: 042
     Dates: start: 20120217
  2. PACLITAXEL [Suspect]
     Indication: BREAST CANCER METASTATIC
     Dosage: WEEKLY
  3. CYCLOPHOSPHAMIDE [Suspect]
     Indication: BREAST CANCER METASTATIC
     Dosage: PER 3 WEEKS
  4. DOXORUBICIN [Suspect]
     Indication: BREAST CANCER METASTATIC
     Dosage: PER 3 WEEKS
  5. DEXAMETHASONE [Concomitant]
     Indication: PREMEDICATION
  6. DIPHENHYDRAMINE [Concomitant]
     Indication: PREMEDICATION
  7. FAMOTIDINE [Concomitant]
     Indication: PREMEDICATION

REACTIONS (1)
  - Cardiac failure [Fatal]
